FAERS Safety Report 6746205-6 (Version None)
Quarter: 2010Q2

REPORT INFORMATION
  Report Type: 
  Country: None (occurrence: None)
  Receive Date: 20100528
  Receipt Date: 20091111
  Transmission Date: 20101027
  Serious: No
  Sender: FDA-Public Use
  Company Number: US-ASTRAZENECA-2009SE26137

PATIENT
  Age: 78 Year
  Sex: Male

DRUGS (5)
  1. OMEPRAZOLE [Suspect]
  2. LANSOPRAZOLE [Suspect]
  3. NIFEDICAL [Concomitant]
  4. TERAZOSIN HCL [Concomitant]
  5. OXYBUTYNIN CHLORIDE [Concomitant]

REACTIONS (1)
  - LICHENOID KERATOSIS [None]
